FAERS Safety Report 7946202-9 (Version None)
Quarter: 2011Q4

REPORT INFORMATION
  Report Type: 
  Country: None (occurrence: None)
  Receive Date: 20111129
  Receipt Date: 20111122
  Transmission Date: 20120403
  Serious: Yes (Hospitalization)
  Sender: FDA-Public Use
  Company Number: DE-UCBSA-044524

PATIENT
  Age: 71 Year
  Sex: Female

DRUGS (22)
  1. NEUPRO [Suspect]
     Route: 062
     Dates: start: 20091001, end: 20091001
  2. LEVOPAR [Concomitant]
     Dosage: FREQUENCY: 1/2-0-1/2
     Dates: start: 20100416, end: 20100419
  3. NEUPRO [Suspect]
     Route: 062
     Dates: start: 20101001, end: 20101001
  4. METROPLROLOL [Concomitant]
     Indication: HYPERTENSION
     Route: 048
  5. SIMVASTATIN [Concomitant]
     Dates: start: 20110512
  6. SEROQUEL [Concomitant]
     Indication: HALLUCINATION
     Route: 048
     Dates: start: 20110512
  7. LEVOPAR [Concomitant]
     Dosage: FREQUENCY: 1/2-0-0 (100 MG TABLET)
     Dates: start: 20100420, end: 20100430
  8. AMANTADINE HCL [Concomitant]
     Dates: end: 20091001
  9. ENALAPRIL MALEATE [Concomitant]
     Indication: HYPERTENSION
     Route: 048
  10. AMANTADINE HCL [Concomitant]
     Dates: start: 20101021
  11. MADOPAR [Concomitant]
     Dates: start: 20110512
  12. NEUPRO [Suspect]
     Indication: PARKINSON'S DISEASE
     Route: 062
     Dates: start: 20101028, end: 20110512
  13. NEUPRO [Suspect]
     Route: 062
     Dates: start: 20101022, end: 20101027
  14. NEUPRO [Suspect]
     Route: 062
     Dates: start: 20091001, end: 20100401
  15. TORSEMIDE [Suspect]
     Indication: HYPERTENSION
     Route: 048
     Dates: start: 20110512
  16. LEVOPAR [Concomitant]
     Dates: end: 20100415
  17. AZILECT [Concomitant]
     Dates: start: 20110512
  18. SIMVASTATIN [Concomitant]
     Indication: BLOOD CHOLESTEROL INCREASED
     Route: 048
  19. NEUPRO [Suspect]
     Route: 062
     Dates: start: 20090701, end: 20091001
  20. MADOPAR LT [Concomitant]
     Dates: start: 20110512
  21. ENALAPRIL PLUS [Concomitant]
     Indication: HYPERTENSION
     Dosage: 10/25 MG
     Route: 048
     Dates: start: 20100415
  22. LEVOTHYROXINE SODIUM [Suspect]
     Indication: THYROID OPERATION
     Route: 048
     Dates: start: 20100801

REACTIONS (1)
  - ATRIAL FIBRILLATION [None]
